FAERS Safety Report 4564579-1 (Version None)
Quarter: 2005Q1

REPORT INFORMATION
  Report Type: 
  Country: None (occurrence: None)
  Receive Date: 20050126
  Receipt Date: 20050111
  Transmission Date: 20050727
  Serious: No
  Sender: FDA-Public Use
  Company Number: A01200500126

PATIENT
  Age: 68 Year
  Sex: Female

DRUGS (2)
  1. ZOLPIDEM TARTRATE [Suspect]
     Indication: INSOMNIA
     Dosage: 10 MG ONCE ORAL
     Route: 048
     Dates: start: 20041221, end: 20041221
  2. ZOLPIDEM TARTRATE [Suspect]
     Indication: POST PROCEDURAL COMPLICATION
     Dosage: 10 MG ONCE ORAL
     Route: 048
     Dates: start: 20041221, end: 20041221

REACTIONS (1)
  - DELIRIUM [None]
